FAERS Safety Report 7997156-0 (Version None)
Quarter: 2011Q4

REPORT INFORMATION
  Report Type: 
  Country: None (occurrence: None)
  Receive Date: 20111221
  Receipt Date: 20111214
  Transmission Date: 20120403
  Serious: Yes (Other)
  Sender: FDA-Public Use
  Company Number: DE-JNJFOC-20111009781

PATIENT
  Sex: Male
  Weight: 68 kg

DRUGS (6)
  1. AMITRIPTYLINE HCL [Interacting]
     Indication: PRODUCT USED FOR UNKNOWN INDICATION
     Dosage: 50 MG AND 100 MG CAPSULES, 50-150 MG
     Route: 048
     Dates: start: 20100901, end: 20110725
  2. PALEXIA RETARD [Suspect]
     Indication: PRODUCT USED FOR UNKNOWN INDICATION
     Dosage: 2 PER DAY
     Route: 048
     Dates: start: 20110211, end: 20110725
  3. SIMVASTATIN [Concomitant]
     Indication: HYPERCHOLESTEROLAEMIA
     Dosage: 20 MG
     Route: 048
  4. PANTOPRAZOLE [Concomitant]
     Indication: GASTROOESOPHAGEAL REFLUX DISEASE
     Dosage: 40 MG
     Route: 048
  5. METOCLOPRAMIDE [Interacting]
     Indication: PRODUCT USED FOR UNKNOWN INDICATION
     Dosage: 4 MG/1 ML ORAL DROPS, 30 MG/DAY
     Route: 048
     Dates: start: 20100901, end: 20110725
  6. LOSARTAN POTASSIUM/HYDROCHLORTHIAZIDE [Concomitant]
     Indication: HYPERTENSION
     Dosage: 50/12.5 MG
     Route: 048

REACTIONS (11)
  - SEROTONIN SYNDROME [None]
  - DRUG INTERACTION [None]
  - PROTEINURIA [None]
  - DYSPNOEA [None]
  - CHILLS [None]
  - EXTRAPYRAMIDAL DISORDER [None]
  - ANXIETY [None]
  - MASKED FACIES [None]
  - MYOGLOBINAEMIA [None]
  - TACHYCARDIA [None]
  - ELECTROCARDIOGRAM QT PROLONGED [None]
